FAERS Safety Report 6908898-X (Version None)
Quarter: 2010Q3

REPORT INFORMATION
  Report Type: 
  Country: None (occurrence: None)
  Receive Date: 20100708
  Receipt Date: 20090315
  Transmission Date: 20110219
  Serious: Yes (Other)
  Sender: FDA-Public Use
  Company Number: 2009185082

PATIENT
  Age: 45 Year
  Sex: Male

DRUGS (1)
  1. CHANTIX [Suspect]
     Indication: SMOKING CESSATION THERAPY
     Dates: start: 20090201

REACTIONS (5)
  - ABNORMAL DREAMS [None]
  - AGGRESSION [None]
  - FEELING ABNORMAL [None]
  - MOOD SWINGS [None]
  - SLEEP DISORDER [None]
